FAERS Safety Report 4677776-1 (Version None)
Quarter: 2005Q2

REPORT INFORMATION
  Report Type: 
  Country: None (occurrence: None)
  Receive Date: 20050531
  Receipt Date: 20050520
  Transmission Date: 20051028
  Serious: Yes (Hospitalization, Disabling)
  Sender: FDA-Public Use
  Company Number: US-JNJFOC-20040702230

PATIENT
  Sex: Male
  Weight: 82.1 kg

DRUGS (2)
  1. REMICADE [Suspect]
     Indication: CROHN'S DISEASE
     Route: 042
  2. PREDNISONE TAB [Concomitant]

REACTIONS (4)
  - ABDOMINAL ABSCESS [None]
  - FAILURE TO THRIVE [None]
  - PULMONARY EMBOLISM [None]
  - RESPIRATORY FAILURE [None]
